FAERS Safety Report 9437373 (Version 1)
Quarter: 2013Q3

REPORT INFORMATION
  Report Type: Spontaneous
  Country: US (occurrence: US)
  Receive Date: 20130802
  Receipt Date: 20130802
  Transmission Date: 20140515
  Serious: Yes (Other)
  Sender: FDA-Public Use
  Company Number: US-TEVA-422383USA

PATIENT
  Age: 22 Year
  Sex: Female
  Weight: 49.49 kg

DRUGS (4)
  1. PARAGARD 380A [Suspect]
     Indication: CONTRACEPTION
     Route: 015
     Dates: end: 20130725
  2. ADDERALL [Concomitant]
     Indication: ATTENTION DEFICIT/HYPERACTIVITY DISORDER
  3. CYMBALTA [Concomitant]
  4. IMITREX [Concomitant]
     Indication: MIGRAINE

REACTIONS (1)
  - Embedded device [Recovered/Resolved]
